FAERS Safety Report 16128184 (Version 4)
Quarter: 2019Q2

REPORT INFORMATION
  Report Type: Report from Study
  Country: US (occurrence: US)
  Receive Date: 20190328
  Receipt Date: 20190529
  Transmission Date: 20190711
  Serious: Yes (Other)
  Sender: FDA-Public Use
  Company Number: US-SA-2019SA081224

PATIENT
  Age: 60 Year
  Sex: Female

DRUGS (2)
  1. ALEMTUZUMAB [Suspect]
     Active Substance: ALEMTUZUMAB
     Indication: MULTIPLE SCLEROSIS
     Dosage: 12 MG, QD
     Route: 041
     Dates: start: 20170607, end: 20170609
  2. ALEMTUZUMAB [Suspect]
     Active Substance: ALEMTUZUMAB
     Dosage: 12MG,QD
     Dates: start: 201606

REACTIONS (3)
  - Neuroendocrine tumour [Unknown]
  - Neoplasm malignant [Unknown]
  - Abdominal pain [Unknown]

NARRATIVE: CASE EVENT DATE: 201901
